FAERS Safety Report 14986606 (Version 7)
Quarter: 2018Q3

REPORT INFORMATION
  Report Type: Report from Study
  Country: FR (occurrence: FR)
  Receive Date: 20180608
  Receipt Date: 20180810
  Transmission Date: 20181010
  Serious: Yes (Hospitalization)
  Sender: FDA-Public Use
  Company Number: FR-ROCHE-2135998

PATIENT
  Age: 38 Year
  Sex: Male
  Weight: 81.4 kg

DRUGS (1)
  1. OBINUTUZUMAB. [Suspect]
     Active Substance: OBINUTUZUMAB
     Indication: MANTLE CELL LYMPHOMA
     Dosage: LAST DAILY DOSE OF OBINUTUZUMAB 1000 MG ON: 20/MAR/2018?TEMPORARILY INTERRUPTED ON: 15/MAY/2018
     Route: 065
     Dates: start: 20170321, end: 20180709

REACTIONS (4)
  - Sinusitis [Recovered/Resolved]
  - Pneumonia haemophilus [Recovered/Resolved]
  - Pneumonia haemophilus [Recovered/Resolved]
  - Bronchopulmonary aspergillosis [Recovered/Resolved]

NARRATIVE: CASE EVENT DATE: 20180605
